FAERS Safety Report 22087245 (Version 1)
Quarter: 2023Q1

REPORT INFORMATION
  Report Type: Spontaneous
  Country: US (occurrence: US)
  Receive Date: 20230313
  Receipt Date: 20230313
  Transmission Date: 20230418
  Serious: No
  Sender: FDA-Public Use
  Company Number: US-Encube-000297

PATIENT
  Age: 66 Year
  Sex: Female

DRUGS (1)
  1. CLOBETASOL PROPIONATE [Suspect]
     Active Substance: CLOBETASOL PROPIONATE
     Indication: Vulvovaginal dryness

REACTIONS (3)
  - Rash [Unknown]
  - Infection [Unknown]
  - Product use in unapproved indication [Unknown]
